FAERS Safety Report 17564861 (Version 3)
Quarter: 2020Q2

REPORT INFORMATION
  Report Type: Report from Study
  Country: CO (occurrence: CO)
  Receive Date: 20200320
  Receipt Date: 20200601
  Transmission Date: 20200713
  Serious: Yes (Death, Hospitalization, Other)
  Sender: FDA-Public Use
  Company Number: CO-ASTELLAS-2020US006224

PATIENT
  Age: 92 Year
  Sex: Male
  Weight: 65 kg

DRUGS (1)
  1. ENZALUTAMIDE [Suspect]
     Active Substance: ENZALUTAMIDE
     Indication: HORMONE-REFRACTORY PROSTATE CANCER
     Route: 048
     Dates: start: 20190618, end: 20200513

REACTIONS (16)
  - Gait disturbance [Not Recovered/Not Resolved]
  - Respiratory arrest [Fatal]
  - Dysphagia [Not Recovered/Not Resolved]
  - Somnolence [Not Recovered/Not Resolved]
  - Penile discharge [Not Recovered/Not Resolved]
  - Aphasia [Not Recovered/Not Resolved]
  - Somnolence [Not Recovered/Not Resolved]
  - Muscular weakness [Recovered/Resolved]
  - Monoplegia [Not Recovered/Not Resolved]
  - Urinary tract infection [Recovered/Resolved]
  - Apathy [Not Recovered/Not Resolved]
  - Decreased appetite [Not Recovered/Not Resolved]
  - Depressed mood [Unknown]
  - General physical health deterioration [Recovered/Resolved]
  - Malaise [Unknown]
  - Product use complaint [Unknown]

NARRATIVE: CASE EVENT DATE: 202002
